FAERS Safety Report 9900355 (Version 1)
Quarter: 2014Q1

REPORT INFORMATION
  Report Type: Spontaneous
  Country: US (occurrence: US)
  Receive Date: 20140216
  Receipt Date: 20140216
  Transmission Date: 20141002
  Serious: Yes (Other)
  Sender: FDA-Public Use
  Company Number: US-009507513-1402USA004581

PATIENT
  Sex: Female

DRUGS (7)
  1. PRINIVIL [Suspect]
     Dosage: STRENGH: 10 MG
     Route: 048
     Dates: start: 1999
  2. PRINIVIL [Suspect]
     Dosage: 5 MG, ^1 TABLET^, STRENGH: 5 MG
     Route: 048
     Dates: end: 20140206
  3. LISINOPRIL [Suspect]
     Route: 048
  4. SIMVASTATIN [Concomitant]
     Route: 048
  5. FOSAMAX [Concomitant]
     Route: 048
  6. BENADRYL [Concomitant]
  7. ASPIRIN [Concomitant]

REACTIONS (6)
  - Stent placement [Unknown]
  - Cardiac murmur [Unknown]
  - Heart valve incompetence [Unknown]
  - Palpitations [Unknown]
  - Headache [Recovered/Resolved]
  - Malaise [Unknown]
